FAERS Safety Report 7882529-7 (Version None)
Quarter: 2011Q4

REPORT INFORMATION
  Report Type: 
  Country: None (occurrence: None)
  Receive Date: 20111101
  Receipt Date: 20110615
  Transmission Date: 20120403
  Serious: No
  Sender: FDA-Public Use
  Company Number: US-AMGEN-USASP2011030697

PATIENT
  Sex: Female

DRUGS (4)
  1. LIPITOR [Concomitant]
  2. COZAAR [Concomitant]
  3. ZANTAC [Concomitant]
  4. ENBREL [Suspect]
     Indication: RHEUMATOID ARTHRITIS
     Dosage: 50 MG, QWK

REACTIONS (2)
  - COUGH [None]
  - THROAT IRRITATION [None]
